FAERS Safety Report 19595615 (Version 2)
Quarter: 2021Q3

REPORT INFORMATION
  Report Type: Spontaneous
  Country: AU (occurrence: AU)
  Receive Date: 20210722
  Receipt Date: 20210811
  Transmission Date: 20211014
  Serious: Yes (Hospitalization)
  Sender: FDA-Public Use
  Company Number: AU-TASMAN PHARMA, INC.-2021TSM00052

PATIENT
  Sex: Male

DRUGS (15)
  1. CLOZAPINE. [Suspect]
     Active Substance: CLOZAPINE
     Dosage: 500 MG
     Dates: start: 20190604, end: 20190630
  2. CLOZAPINE. [Suspect]
     Active Substance: CLOZAPINE
     Dosage: 450 MG
     Dates: start: 20180917, end: 20181015
  3. CLOZAPINE. [Suspect]
     Active Substance: CLOZAPINE
     Dosage: 450 MG
     Dates: start: 20180725, end: 20180916
  4. CLOZAPINE. [Suspect]
     Active Substance: CLOZAPINE
     Dosage: 450 MG
     Dates: start: 20190515, end: 20190603
  5. CLOZAPINE. [Suspect]
     Active Substance: CLOZAPINE
     Dosage: 550 MG
     Dates: start: 20190814, end: 20200809
  6. CLOZAPINE. [Suspect]
     Active Substance: CLOZAPINE
     Dosage: 650 MG
     Dates: start: 20210527, end: 20210608
  7. CLOZAPINE. [Suspect]
     Active Substance: CLOZAPINE
     Dosage: 450 MG
     Dates: start: 20181016, end: 20190203
  8. CLOZAPINE. [Suspect]
     Active Substance: CLOZAPINE
     Dosage: 650 MG
     Dates: start: 20210609, end: 20210721
  9. CLOZAPINE. [Suspect]
     Active Substance: CLOZAPINE
     Dosage: 500 MG
     Dates: start: 20190701, end: 20190813
  10. CLOZAPINE. [Suspect]
     Active Substance: CLOZAPINE
     Dosage: 450 MG
     Dates: start: 20190204, end: 20190305
  11. CLOZAPINE. [Suspect]
     Active Substance: CLOZAPINE
     Dosage: 450 MG
     Dates: start: 20190401, end: 20190514
  12. CLOZAPINE. [Suspect]
     Active Substance: CLOZAPINE
     Dosage: 450 MG
     Dates: start: 20190306, end: 20190331
  13. CLOZAPINE. [Suspect]
     Active Substance: CLOZAPINE
     Dosage: 650 MG
     Dates: start: 20200901, end: 20210526
  14. CLOZAPINE. [Suspect]
     Active Substance: CLOZAPINE
     Dosage: 600 MG
     Dates: start: 20210722
  15. CLOZAPINE. [Suspect]
     Active Substance: CLOZAPINE
     Dosage: 350 MG
     Dates: start: 20200810, end: 20200831

REACTIONS (4)
  - Unevaluable event [Unknown]
  - Fall [Unknown]
  - White blood cell count decreased [Unknown]
  - Pneumonia aspiration [Unknown]

NARRATIVE: CASE EVENT DATE: 20210705
